FAERS Safety Report 6464442-5 (Version None)
Quarter: 2009Q4

REPORT INFORMATION
  Report Type: 
  Country: None (occurrence: None)
  Receive Date: 20091124
  Receipt Date: 20091115
  Transmission Date: 20100525
  Serious: Yes (Hospitalization, Other)
  Sender: FDA-Public Use
  Company Number: JPI-P-009190

PATIENT
  Age: 36 Year
  Sex: Male

DRUGS (16)
  1. XYREM [Suspect]
     Indication: HYPERSOMNIA
     Dosage: SEE IMAGE
     Route: 048
     Dates: start: 20050321
  2. XYREM [Suspect]
     Indication: HYPERSOMNIA
     Dosage: SEE IMAGE
     Route: 048
     Dates: start: 20090728
  3. XYREM [Suspect]
     Indication: HYPERSOMNIA
     Dosage: SEE IMAGE
     Route: 048
     Dates: start: 20090728
  4. RAMELTEON [Concomitant]
  5. GABAPENTIN [Concomitant]
  6. DULOXETINE HYDROCHLORIDE [Concomitant]
  7. MODAFINIL [Concomitant]
  8. ALPRAZOLAM [Concomitant]
  9. VITAMIN B COMPLEX CAP [Concomitant]
  10. TOPIRAMATE [Concomitant]
  11. FEXOFENADINE [Concomitant]
  12. FLUTICASONE PROPIONATE [Concomitant]
  13. ALBUTEROL SULFATE AUTOHALER [Concomitant]
  14. FLUTICASONE AND SALMETEROL [Concomitant]
  15. INSULIN [Concomitant]
  16. PANTOPRAZOLE [Concomitant]

REACTIONS (8)
  - CHOLECYSTITIS [None]
  - CONVULSION [None]
  - DIABETES MELLITUS [None]
  - GASTROOESOPHAGEAL REFLUX DISEASE [None]
  - HUNGER [None]
  - LABORATORY TEST ABNORMAL [None]
  - PANCREATITIS ACUTE [None]
  - WEIGHT INCREASED [None]
